FAERS Safety Report 7322808-5 (Version None)
Quarter: 2011Q1

REPORT INFORMATION
  Report Type: 
  Country: None (occurrence: None)
  Receive Date: 20110301
  Receipt Date: 20110215
  Transmission Date: 20110831
  Serious: Yes (Other)
  Sender: FDA-Public Use
  Company Number: US-JNJFOC-20110206874

PATIENT
  Age: 5 Decade
  Sex: Female

DRUGS (4)
  1. CIALIS [Concomitant]
     Indication: PULMONARY HYPERTENSION
  2. INTELENCE [Suspect]
     Indication: HIV INFECTION
  3. PREZISTA [Concomitant]
     Indication: HIV INFECTION
     Route: 065
  4. TRUVADA [Concomitant]
     Indication: HIV INFECTION

REACTIONS (4)
  - PULMONARY HYPERTENSION [None]
  - JAUNDICE [None]
  - PAIN IN EXTREMITY [None]
  - LIVER FUNCTION TEST ABNORMAL [None]
